FAERS Safety Report 17880450 (Version 2)
Quarter: 2020Q3

REPORT INFORMATION
  Report Type: Spontaneous
  Country: US (occurrence: US)
  Receive Date: 20200610
  Receipt Date: 20200713
  Transmission Date: 20201103
  Serious: No
  Sender: FDA-Public Use
  Company Number: US-GLAXOSMITHKLINE-US2020096490

PATIENT
  Sex: Female

DRUGS (1)
  1. VENTOLIN HFA [Suspect]
     Active Substance: ALBUTEROL SULFATE
     Indication: WHEEZING
     Dosage: 2 PUFF(S), PRN
     Route: 055
     Dates: start: 2019

REACTIONS (6)
  - Wrong technique in device usage process [Unknown]
  - Candida infection [Recovered/Resolved]
  - Oropharyngeal pain [Unknown]
  - Glossodynia [Unknown]
  - Drug ineffective [Unknown]
  - Wrong technique in product usage process [Unknown]
